FAERS Safety Report 12629869 (Version 1)
Quarter: 2016Q3

REPORT INFORMATION
  Report Type: Spontaneous
  Country: US (occurrence: US)
  Receive Date: 20160808
  Receipt Date: 20160808
  Transmission Date: 20161109
  Serious: Yes (Other)
  Sender: FDA-Public Use
  Company Number: US-SA-2016SA139768

PATIENT
  Age: 74 Year
  Sex: Male

DRUGS (4)
  1. PROGRAF [Concomitant]
     Active Substance: TACROLIMUS\TACROLIMUS ANHYDROUS
  2. CELLCEPT [Concomitant]
     Active Substance: MYCOPHENOLATE MOFETIL\MYCOPHENOLATE MOFETIL HYDROCHLORIDE
  3. LANTUS [Suspect]
     Active Substance: INSULIN GLARGINE
     Indication: DIABETES MELLITUS
     Route: 065
  4. LANTUS [Suspect]
     Active Substance: INSULIN GLARGINE
     Indication: DIABETES MELLITUS
     Dosage: DOSE:20 UNIT(S)
     Route: 065
     Dates: start: 2015

REACTIONS (9)
  - Anaemia [Unknown]
  - Renal failure [Unknown]
  - Asthenia [Unknown]
  - Pain [Unknown]
  - Hypothalamo-pituitary disorder [Unknown]
  - Dyspnoea [Unknown]
  - Blood cholesterol abnormal [Unknown]
  - Hypothyroidism [Unknown]
  - Blood glucose increased [Not Recovered/Not Resolved]
